FAERS Safety Report 5745682-7 (Version None)
Quarter: 2008Q2

REPORT INFORMATION
  Report Type: 
  Country: None (occurrence: None)
  Receive Date: 20080521
  Receipt Date: 20080425
  Transmission Date: 20081010
  Serious: No
  Sender: FDA-Public Use
  Company Number: US-BOEHRINGER INGELHEIM GMBH, GERMANY-2008-BP-06583BP

PATIENT
  Sex: Male

DRUGS (4)
  1. COMBIVENT [Suspect]
     Dosage: 4 PUFFS FOUR TIMES DAILY
     Route: 055
     Dates: start: 20010904
  2. AVELOX [Concomitant]
     Dosage: 1 DAILY FOR 14 DAYS
     Dates: start: 20080420, end: 20080503
  3. SMZ/TMP DS [Concomitant]
     Dosage: 800/160 1 TWICE DAILY
     Dates: start: 20080320
  4. RIFAMPIN [Concomitant]
     Dosage: 1 DAILY
     Dates: start: 20080320

REACTIONS (3)
  - COUGH [None]
  - DRUG INEFFECTIVE [None]
  - DYSPNOEA [None]
